FAERS Safety Report 8079135-0 (Version None)
Quarter: 2012Q1

REPORT INFORMATION
  Report Type: 
  Country: None (occurrence: None)
  Receive Date: 20120128
  Receipt Date: 20110818
  Transmission Date: 20120608
  Serious: No
  Sender: FDA-Public Use
  Company Number: US-ABBOTT-11P-163-0847919-00

PATIENT
  Age: 60 Year
  Sex: Male

DRUGS (12)
  1. LISINOPRIL [Concomitant]
     Indication: HYPERTENSION
  2. NEXIUM [Concomitant]
     Indication: DYSPEPSIA
  3. PRESERVISION LUTEIN EYE VITA.+MIN.SUP.SOFTG. [Concomitant]
     Indication: EYE DISORDER
     Dosage: DAILY
  4. PENTASA [Concomitant]
     Indication: PRODUCT USED FOR UNKNOWN INDICATION
     Dosage: 500 MG AT 7AM, 12PM, 9PM, 1000 MG AT 5PM
  5. CARBAMAZEPINE [Concomitant]
     Indication: CONVULSION
  6. PREDNISONE TAB [Concomitant]
     Indication: PRODUCT USED FOR UNKNOWN INDICATION
  7. CALCIUM +VIT D [Concomitant]
     Indication: PRODUCT USED FOR UNKNOWN INDICATION
  8. VITAMIN D [Concomitant]
     Indication: PRODUCT USED FOR UNKNOWN INDICATION
  9. HUMIRA [Suspect]
     Indication: CROHN'S DISEASE
     Dates: start: 20080101
  10. SINGULAIR [Concomitant]
     Indication: HYPERSENSITIVITY
  11. LIPITOR [Concomitant]
     Indication: BLOOD CHOLESTEROL INCREASED
  12. PLAVIX [Concomitant]
     Indication: CARDIAC DISORDER

REACTIONS (3)
  - RECTAL HAEMORRHAGE [None]
  - ASTHENIA [None]
  - DRUG EFFECT DECREASED [None]
